FAERS Safety Report 11614289 (Version 2)
Quarter: 2015Q4

REPORT INFORMATION
  Report Type: Spontaneous
  Country: US (occurrence: US)
  Receive Date: 20151008
  Receipt Date: 20151013
  Transmission Date: 20160304
  Serious: No
  Sender: FDA-Public Use
  Company Number: US-009507513-1509USA012769

PATIENT
  Age: 47 Year
  Sex: Male
  Weight: 136.51 kg

DRUGS (2)
  1. CUBICIN [Suspect]
     Active Substance: DAPTOMYCIN
     Indication: WOUND INFECTION
     Dosage: 6 MG/KG, QD
     Route: 042
     Dates: start: 20150917
  2. FORTAZ [Concomitant]
     Active Substance: CEFTAZIDIME SODIUM
     Dosage: 1 G, Q24H
     Route: 048

REACTIONS (2)
  - Drug ineffective [Not Recovered/Not Resolved]
  - Diphtheria [Not Recovered/Not Resolved]

NARRATIVE: CASE EVENT DATE: 201509
